FAERS Safety Report 4485145-2 (Version None)
Quarter: 2004Q4

REPORT INFORMATION
  Report Type: 
  Country: None (occurrence: None)
  Receive Date: 20041026
  Receipt Date: 20031210
  Transmission Date: 20050328
  Serious: No
  Sender: FDA-Public Use
  Company Number: US-BRISTOL-MYERS SQUIBB COMPANY-12455598

PATIENT
  Age: 58 Year
  Sex: Female
  Weight: 82 kg

DRUGS (7)
  1. GLUCOPHAGE XR [Suspect]
     Indication: DIABETES MELLITUS
     Route: 048
  2. ZOCOR [Concomitant]
  3. LISINOPRIL [Concomitant]
  4. ETODOLAC [Concomitant]
  5. OMEPRAZOLE [Concomitant]
  6. VITAMIN E [Concomitant]
  7. CALCIUM [Concomitant]

REACTIONS (1)
  - CONSTIPATION [None]
